FAERS Safety Report 8542451-X (Version None)
Quarter: 2012Q3

REPORT INFORMATION
  Report Type: 
  Country: None (occurrence: None)
  Receive Date: 20120726
  Receipt Date: 20110720
  Transmission Date: 20120928
  Serious: Yes (Hospitalization, Other)
  Sender: FDA-Public Use
  Company Number: US-ASTRAZENECA-2007UW27803

PATIENT
  Age: 41 Year
  Sex: Female
  Weight: 104.3 kg

DRUGS (23)
  1. NEURONTIN [Concomitant]
  2. ZYPREXA [Concomitant]
  3. CELEXA [Concomitant]
  4. SEROQUEL [Suspect]
     Dosage: 25 MG- 600 MG
     Route: 048
  5. RISPERDAL [Concomitant]
     Dosage: INJECTION BELIEVED TO BE 2 QW
  6. IBUPROFEN [Concomitant]
  7. TOPAMAX [Concomitant]
  8. SEROQUEL [Suspect]
     Dosage: 25 MG- 600 MG
     Route: 048
  9. DEPAKOTE [Concomitant]
  10. BENADRYL [Concomitant]
  11. SEROQUEL [Suspect]
     Indication: BIPOLAR DISORDER
     Dosage: VARIOUS (INCLUDING BUT NOT LIMITED TO 100MG, 300MG)
     Route: 048
     Dates: start: 19960101, end: 20061101
  12. SEROQUEL [Suspect]
     Indication: DEPRESSION
     Dosage: VARIOUS (INCLUDING BUT NOT LIMITED TO 100MG, 300MG)
     Route: 048
     Dates: start: 19960101, end: 20061101
  13. CHLORHEXIDINE GLUCONATE [Concomitant]
  14. CLOZARIL [Concomitant]
  15. HALOPERIDOL [Concomitant]
  16. VALPROIC ACID [Concomitant]
  17. CLOPIDOGREL [Concomitant]
  18. PLAVIX [Concomitant]
     Dates: start: 20060826
  19. LITHIUM CARBONATE [Concomitant]
  20. METFORMIN HYDROCHLORIDE [Concomitant]
  21. AMBIEN [Concomitant]
  22. RANITIDINE [Concomitant]
  23. PROTONIX [Concomitant]
     Dates: start: 20060826

REACTIONS (7)
  - SUICIDAL IDEATION [None]
  - NERVOUS SYSTEM DISORDER [None]
  - HYPERGLYCAEMIA [None]
  - PARALYSIS [None]
  - HEMIPLEGIA [None]
  - CEREBROVASCULAR ACCIDENT [None]
  - TYPE 2 DIABETES MELLITUS [None]
